FAERS Safety Report 15910704 (Version 3)
Quarter: 2022Q1

REPORT INFORMATION
  Report Type: Spontaneous
  Country: US (occurrence: US)
  Receive Date: 20190204
  Receipt Date: 20220106
  Transmission Date: 20220424
  Serious: Yes (Other)
  Sender: FDA-Public Use
  Company Number: US-GILEAD-2019-0387820

PATIENT
  Age: 36 Year
  Sex: Male
  Weight: 74.83 kg

DRUGS (39)
  1. TRUVADA [Suspect]
     Active Substance: EMTRICITABINE\TENOFOVIR DISOPROXIL FUMARATE
     Indication: HIV infection
     Dosage: UNK
     Route: 048
     Dates: start: 2005, end: 2016
  2. ATRIPLA [Suspect]
     Active Substance: EFAVIRENZ\EMTRICITABINE\TENOFOVIR DISOPROXIL FUMARATE
     Indication: HIV infection
     Dosage: UNK
     Route: 048
     Dates: start: 2005, end: 2016
  3. ATRIPLA [Suspect]
     Active Substance: EFAVIRENZ\EMTRICITABINE\TENOFOVIR DISOPROXIL FUMARATE
     Dosage: UNK
     Route: 048
     Dates: start: 2005, end: 20150318
  4. ATRIPLA [Suspect]
     Active Substance: EFAVIRENZ\EMTRICITABINE\TENOFOVIR DISOPROXIL FUMARATE
     Dosage: UNK
     Route: 048
     Dates: start: 200811, end: 20150318
  5. STRIBILD [Suspect]
     Active Substance: COBICISTAT\ELVITEGRAVIR\EMTRICITABINE\TENOFOVIR DISOPROXIL FUMARATE
     Indication: HIV infection
     Dosage: UNK
     Route: 048
     Dates: start: 2005, end: 2016
  6. BIKTARVY [Concomitant]
     Active Substance: BICTEGRAVIR SODIUM\EMTRICITABINE\TENOFOVIR ALAFENAMIDE FUMARATE
  7. COMBIVIR [Concomitant]
     Active Substance: LAMIVUDINE\ZIDOVUDINE
  8. KALETRA [Concomitant]
     Active Substance: LOPINAVIR\RITONAVIR
  9. CELECOXIB [Concomitant]
     Active Substance: CELECOXIB
     Dosage: UNK
     Dates: start: 2003
  10. CEPHALEXIN [Concomitant]
     Active Substance: CEPHALEXIN
     Dosage: UNK
     Dates: start: 2010
  11. CHLORPROMAZINE [Concomitant]
     Active Substance: CHLORPROMAZINE
     Dosage: UNK
     Dates: start: 2010
  12. CIALIS [Concomitant]
     Active Substance: TADALAFIL
     Dosage: UNK
     Dates: start: 2012
  13. CITALOPRAM [Concomitant]
     Active Substance: CITALOPRAM HYDROBROMIDE
     Dosage: UNK
     Dates: start: 2009
  14. CLINDAMYCIN [Concomitant]
     Active Substance: CLINDAMYCIN
     Dosage: UNK
     Dates: start: 2010
  15. CLONAZEPAM [Concomitant]
     Active Substance: CLONAZEPAM
     Dosage: UNK
     Dates: start: 2011, end: 2012
  16. CYMBALTA [Concomitant]
     Active Substance: DULOXETINE HYDROCHLORIDE
     Dosage: UNK
     Dates: start: 2012
  17. CYPROHEPTADINE [Concomitant]
     Active Substance: CYPROHEPTADINE
     Dosage: UNK
     Dates: start: 2012, end: 2014
  18. DESYREL [Concomitant]
     Active Substance: TRAZODONE HYDROCHLORIDE
     Dosage: UNK
     Dates: start: 2003
  19. ENDOCET [Concomitant]
     Active Substance: ACETAMINOPHEN\OXYCODONE HYDROCHLORIDE
     Dosage: UNK
     Dates: start: 2013
  20. FENOFIBRATE [Concomitant]
     Active Substance: FENOFIBRATE
     Dosage: UNK
     Dates: start: 2015
  21. HYOSCYAMINE [Concomitant]
     Active Substance: HYOSCYAMINE
     Dosage: UNK
     Dates: start: 2011, end: 2014
  22. KEPPRA [Concomitant]
     Active Substance: LEVETIRACETAM
     Dosage: UNK
     Dates: start: 2009, end: 2012
  23. LEVETIRACETAM [Concomitant]
     Active Substance: LEVETIRACETAM
     Dosage: UNK
     Dates: start: 2011, end: 2014
  24. LYRICA [Concomitant]
     Active Substance: PREGABALIN
     Dosage: UNK
     Dates: start: 2010, end: 2015
  25. METRONIDAZOLE [Concomitant]
     Active Substance: METRONIDAZOLE
     Dosage: UNK
     Dates: start: 2010
  26. NASONEX [Concomitant]
     Active Substance: MOMETASONE FUROATE
     Dosage: UNK
     Dates: start: 2011, end: 2013
  27. NEXIUM I.V. [Concomitant]
     Active Substance: ESOMEPRAZOLE SODIUM
     Dosage: UNK
     Dates: start: 2012, end: 2015
  28. OXCARBAZEPINE [Concomitant]
     Active Substance: OXCARBAZEPINE
     Dosage: UNK
     Dates: start: 2009, end: 2015
  29. PROMETHAZINE [Concomitant]
     Active Substance: PROMETHAZINE HYDROCHLORIDE
     Dosage: UNK
     Dates: start: 2010, end: 2015
  30. PROMETHEGAN [Concomitant]
     Active Substance: PROMETHAZINE HYDROCHLORIDE
     Dosage: UNK
     Dates: start: 2011
  31. SEROQUEL [Concomitant]
     Active Substance: QUETIAPINE FUMARATE
     Dosage: UNK
     Dates: start: 2010, end: 2011
  32. TRAZODONE [Concomitant]
     Active Substance: TRAZODONE HYDROCHLORIDE
     Dosage: UNK
     Dates: start: 2009
  33. TRILEPTAL [Concomitant]
     Active Substance: OXCARBAZEPINE
     Dosage: UNK
     Dates: start: 2010, end: 2011
  34. XANAX [Concomitant]
     Active Substance: ALPRAZOLAM
     Dosage: UNK
     Dates: start: 2014, end: 2018
  35. VIAGRA [Concomitant]
     Active Substance: SILDENAFIL CITRATE
     Dosage: UNK
     Dates: start: 2011
  36. TRAMADOL HCL [Concomitant]
     Active Substance: TRAMADOL HYDROCHLORIDE
     Dosage: UNK
     Dates: start: 2010
  37. MEPERIDINE HYDROCHLORIDE [Concomitant]
     Active Substance: MEPERIDINE HYDROCHLORIDE
     Dosage: UNK
     Dates: start: 2011
  38. OXYCODONE AND ACETAMINOPHEN [Concomitant]
     Active Substance: ACETAMINOPHEN\OXYCODONE HYDROCHLORIDE
     Dosage: UNK
     Dates: start: 2009, end: 2015
  39. PERCOCET [Concomitant]
     Active Substance: ACETAMINOPHEN\OXYCODONE HYDROCHLORIDE

REACTIONS (15)
  - Osteoporosis [Unknown]
  - Renal failure [Unknown]
  - Spinal fracture [Not Recovered/Not Resolved]
  - Rib fracture [Unknown]
  - Dementia [Unknown]
  - Renal disorder [Unknown]
  - Bone density decreased [Unknown]
  - Osteopenia [Not Recovered/Not Resolved]
  - Impaired quality of life [Unknown]
  - Dysstasia [Unknown]
  - Pain [Not Recovered/Not Resolved]
  - Emotional distress [Not Recovered/Not Resolved]
  - Anxiety [Not Recovered/Not Resolved]
  - Anhedonia [Not Recovered/Not Resolved]
  - Economic problem [Not Recovered/Not Resolved]

NARRATIVE: CASE EVENT DATE: 20130101
